FAERS Safety Report 5093813-7 (Version None)
Quarter: 2006Q3

REPORT INFORMATION
  Report Type: 
  Country: None (occurrence: None)
  Receive Date: 20060829
  Receipt Date: 20060829
  Transmission Date: 20061208
  Serious: Yes (Hospitalization)
  Sender: FDA-Public Use
  Company Number: None

PATIENT
  Sex: Female
  Weight: 57.7 kg

DRUGS (2)
  1. IRINOTECAN HCL [Suspect]
     Indication: GLIOBLASTOMA MULTIFORME
     Dosage: 125MG/M2    DAY 1, 8, 22, 29    IV
     Route: 042
     Dates: start: 20060817
  2. TEMODAR [Suspect]
     Indication: GLIOBLASTOMA MULTIFORME
     Dosage: 200MG/M2     DAYS 1-5    PO
     Route: 048
     Dates: start: 20060817, end: 20060821

REACTIONS (2)
  - PNEUMOTHORAX [None]
  - PROCEDURAL COMPLICATION [None]
